FAERS Safety Report 15266017 (Version 1)
Quarter: 2018Q3

REPORT INFORMATION
  Report Type: Report from Study
  Country: CA (occurrence: CA)
  Receive Date: 20180810
  Receipt Date: 20180810
  Transmission Date: 20181010
  Serious: Yes (Other)
  Sender: FDA-Public Use
  Company Number: CA-GLAXOSMITHKLINE-CA2018GSK143373

PATIENT
  Age: 76 Year
  Sex: Female

DRUGS (7)
  1. VENTOLIN [Suspect]
     Active Substance: ALBUTEROL SULFATE
     Indication: PRODUCT USED FOR UNKNOWN INDICATION
     Dosage: UNK
     Route: 055
  2. PREDNISONE. [Suspect]
     Active Substance: PREDNISONE
     Indication: DYSPNOEA
  3. FLUTICASONE FUROATE + VILANTEROL TRIFENATATE [Suspect]
     Active Substance: FLUTICASONE FUROATE\VILANTEROL TRIFENATATE
     Indication: PRODUCT USED FOR UNKNOWN INDICATION
     Dosage: 1 PUFF(S), QOD
  4. ANTIHISTAMINE [Concomitant]
     Active Substance: ANTIHISTAMINES NOS
     Indication: PRODUCT USED FOR UNKNOWN INDICATION
     Dosage: 5 MG, QD
  5. AMLODIPINE [Suspect]
     Active Substance: AMLODIPINE BESYLATE
     Indication: PRODUCT USED FOR UNKNOWN INDICATION
     Dosage: 5 MG, QD
  6. PREDNISONE. [Suspect]
     Active Substance: PREDNISONE
     Indication: PNEUMONIA
     Dosage: UNK
  7. CRESTOR [Concomitant]
     Active Substance: ROSUVASTATIN CALCIUM
     Indication: PRODUCT USED FOR UNKNOWN INDICATION
     Dosage: 10 MG, QD

REACTIONS (18)
  - Drug effect incomplete [Unknown]
  - Fluid retention [Unknown]
  - Dyspnoea exertional [Unknown]
  - Sleep apnoea syndrome [Unknown]
  - Dyspnoea [Recovering/Resolving]
  - Dizziness [Unknown]
  - Fatigue [Unknown]
  - Asthma [Unknown]
  - Wheezing [Unknown]
  - Pneumonia [Unknown]
  - Hyperglycaemia [Unknown]
  - Weight increased [Unknown]
  - Dizziness postural [Unknown]
  - Aortic stenosis [Unknown]
  - Dyspnoea [Unknown]
  - Blood count abnormal [Unknown]
  - Asthenia [Unknown]
  - Obesity [Unknown]

NARRATIVE: CASE EVENT DATE: 20180409
